FAERS Safety Report 11193335 (Version 3)
Quarter: 2015Q4

REPORT INFORMATION
  Report Type: Spontaneous
  Country: US (occurrence: US)
  Receive Date: 20150616
  Receipt Date: 20151019
  Transmission Date: 20160304
  Serious: Yes (Other)
  Sender: FDA-Public Use
  Company Number: US-PFIZER INC-2015167134

PATIENT
  Age: 75 Year
  Sex: Female

DRUGS (14)
  1. SUTENT [Suspect]
     Active Substance: SUNITINIB MALATE
     Indication: METASTATIC RENAL CELL CARCINOMA
     Dosage: 90 MG, DAILY (ONE CAPSULE PO QD X 28 DAYS)
     Route: 048
  2. SYNTHROID [Concomitant]
     Active Substance: LEVOTHYROXINE SODIUM
     Dosage: 75 ?G, DAILY
     Route: 048
     Dates: start: 20090720
  3. FISH OIL [Concomitant]
     Active Substance: FISH OIL
     Dosage: UNK
     Dates: start: 20101025
  4. CITALOPRAM [Concomitant]
     Active Substance: CITALOPRAM HYDROBROMIDE
     Dosage: 40 MG (1 TABLET), DAILY
     Route: 048
     Dates: start: 20130618
  5. XANAX [Concomitant]
     Active Substance: ALPRAZOLAM
     Indication: ANXIETY
     Dosage: 1 MG, AS NEEDED (0.5 MG TABLET, 1 MG (2 TABLET) TID, PRN)
  6. OMEGA 3 [Concomitant]
     Active Substance: OMEGA-3 FATTY ACIDS
     Dosage: UNK
  7. DILTIAZEM HYDROCHLORIDE. [Concomitant]
     Active Substance: DILTIAZEM HYDROCHLORIDE
     Dosage: 120 MG (1 TABLET), DAILY
     Route: 048
     Dates: start: 20130618
  8. VITAMIN E [Concomitant]
     Active Substance: .ALPHA.-TOCOPHEROL
     Dosage: UNK
     Route: 048
     Dates: start: 20120315
  9. MAGNESIUM [Concomitant]
     Active Substance: MAGNESIUM
     Dosage: UNK
     Dates: start: 20101025
  10. BENICAR [Concomitant]
     Active Substance: OLMESARTAN MEDOXOMIL
     Dosage: 20 MG, (1 TABLET) DAILY
     Route: 048
     Dates: start: 20130618
  11. B+E VITAMINS [Concomitant]
     Dosage: UNK
     Dates: start: 20101025
  12. SUTENT [Suspect]
     Active Substance: SUNITINIB MALATE
     Dosage: UNK
     Route: 048
     Dates: start: 20150525, end: 20150530
  13. COQ10 [Concomitant]
     Active Substance: UBIDECARENONE
     Dosage: UNK
     Dates: start: 20101025
  14. CALCIUM [Concomitant]
     Active Substance: CALCIUM
     Dosage: UNK
     Dates: start: 20101025

REACTIONS (6)
  - Disease progression [Unknown]
  - Blood pressure increased [Unknown]
  - Seizure [Unknown]
  - Metastatic renal cell carcinoma [Unknown]
  - Asthenia [Unknown]
  - Skin lesion [Unknown]
